FAERS Safety Report 12310116 (Version 1)
Quarter: 2016Q2

REPORT INFORMATION
  Report Type: Spontaneous
  Country: FR (occurrence: FR)
  Receive Date: 20160427
  Receipt Date: 20160427
  Transmission Date: 20160815
  Serious: Yes (Disabling)
  Sender: FDA-Public Use
  Company Number: FR-ASTRAZENECA-2016SE44057

PATIENT
  Age: 51 Year
  Sex: Female
  Weight: 90 kg

DRUGS (5)
  1. LERCAN [Concomitant]
     Active Substance: LERCANIDIPINE
  2. BYDUREON [Suspect]
     Active Substance: EXENATIDE
     Indication: TYPE 2 DIABETES MELLITUS
     Route: 065
     Dates: start: 20150825
  3. LIPANTHYL [Concomitant]
     Active Substance: FENOFIBRATE
  4. DIAMICRON [Concomitant]
     Active Substance: GLICLAZIDE
     Indication: TYPE 2 DIABETES MELLITUS
  5. APROVEL [Concomitant]
     Active Substance: IRBESARTAN

REACTIONS (1)
  - Weight increased [Not Recovered/Not Resolved]
